FAERS Safety Report 7971915-2 (Version None)
Quarter: 2011Q4

REPORT INFORMATION
  Report Type: 
  Country: None (occurrence: None)
  Receive Date: 20111212
  Receipt Date: 20111205
  Transmission Date: 20120403
  Serious: Yes (Other)
  Sender: FDA-Public Use
  Company Number: PHEH2011US010939

PATIENT
  Sex: Female

DRUGS (7)
  1. EXFORGE [Suspect]
     Dosage: 1 DF, (320/5 MG, ONCE PER DAY)
  2. CARGIAXT [Concomitant]
     Dosage: 180 MG, ONE PER DAY
  3. CALCIUM W/VITAMIN D NOS [Concomitant]
  4. CHEMOTHERAPEUTICS NOS [Suspect]
  5. MULTI-VITAMINS [Concomitant]
  6. GLIPIZIDE [Concomitant]
     Dosage: 5 MG, ( TWO PER DAY)
  7. MULTAQ [Concomitant]
     Dosage: 400 MG, (TWO PER DAY)

REACTIONS (3)
  - NEOPLASM MALIGNANT [None]
  - DYSPHAGIA [None]
  - PHARYNGEAL OEDEMA [None]
